FAERS Safety Report 5131480-4 (Version None)
Quarter: 2006Q4

REPORT INFORMATION
  Report Type: 
  Country: None (occurrence: None)
  Receive Date: 20061020
  Receipt Date: 20061013
  Transmission Date: 20070319
  Serious: Yes (Death, Hospitalization)
  Sender: FDA-Public Use
  Company Number: GB-SANOFI-SYNTHELABO-A01200608620

PATIENT
  Age: 63 Year
  Sex: Male
  Weight: 90 kg

DRUGS (2)
  1. OXALIPLATIN [Suspect]
     Route: 042
     Dates: start: 20060712
  2. XELODA [Suspect]
     Route: 048
     Dates: start: 20060712, end: 20060723

REACTIONS (5)
  - CARDIO-RESPIRATORY ARREST [None]
  - DEATH [None]
  - DIARRHOEA [None]
  - FALL [None]
  - FATIGUE [None]
